FAERS Safety Report 7287561-2 (Version None)
Quarter: 2011Q1

REPORT INFORMATION
  Report Type: 
  Country: None (occurrence: None)
  Receive Date: 20110208
  Receipt Date: 20110208
  Transmission Date: 20110831
  Serious: Yes (Hospitalization)
  Sender: FDA-Public Use
  Company Number: None

PATIENT
  Age: 82 Year
  Sex: Female
  Weight: 56.6996 kg

DRUGS (1)
  1. HYDRALAZINE HCL [Suspect]

REACTIONS (12)
  - DIZZINESS [None]
  - ANXIETY [None]
  - ASTHENIA [None]
  - MUSCLE SPASMS [None]
  - PARAESTHESIA [None]
  - NAUSEA [None]
  - HEADACHE [None]
  - ABDOMINAL PAIN UPPER [None]
  - THROAT TIGHTNESS [None]
  - HEART RATE INCREASED [None]
  - ABDOMINAL DISCOMFORT [None]
  - VOMITING [None]
